FAERS Safety Report 6743896-0 (Version None)
Quarter: 2010Q2

REPORT INFORMATION
  Report Type: 
  Country: None (occurrence: None)
  Receive Date: 20100527
  Receipt Date: 20100523
  Transmission Date: 20101027
  Serious: Yes (Hospitalization)
  Sender: FDA-Public Use
  Company Number: US-SANOFI-AVENTIS-2010SA029566

PATIENT
  Age: 79 Year
  Sex: Male
  Weight: 81.5 kg

DRUGS (4)
  1. DOCETAXEL [Suspect]
     Indication: PROSTATE CANCER
     Route: 041
     Dates: start: 20090522, end: 20090522
  2. DOCETAXEL [Suspect]
     Route: 041
     Dates: start: 20090724, end: 20090724
  3. BLINDED THERAPY [Suspect]
     Indication: PROSTATE CANCER
     Route: 048
     Dates: start: 20090522, end: 20090807
  4. PREDNISONE TAB [Suspect]
     Indication: PROSTATE CANCER
     Route: 048
     Dates: start: 20090522, end: 20090807

REACTIONS (1)
  - HYPOXIA [None]
